FAERS Safety Report 9381876 (Version 2)
Quarter: 2013Q3

REPORT INFORMATION
  Report Type: Spontaneous
  Country: US (occurrence: US)
  Receive Date: 20130703
  Receipt Date: 20130808
  Transmission Date: 20140515
  Serious: No
  Sender: FDA-Public Use
  Company Number: US-PFIZER INC-2013195271

PATIENT
  Age: 71 Year
  Sex: Female
  Weight: 50.79 kg

DRUGS (4)
  1. XELJANZ [Suspect]
     Indication: RHEUMATOID ARTHRITIS
     Dosage: 5 MG, 2X/DAY
     Route: 048
     Dates: start: 201305, end: 20130623
  2. XELJANZ [Suspect]
     Dosage: UNK
     Dates: start: 20130627
  3. PREDNISONE [Concomitant]
     Dosage: 20 MG
  4. AMLODIPINE [Concomitant]
     Dosage: 2.5 MG

REACTIONS (9)
  - Malaise [Recovered/Resolved]
  - Respiratory tract congestion [Recovered/Resolved]
  - Nasopharyngitis [Recovered/Resolved]
  - Hypersensitivity [Recovered/Resolved]
  - Peripheral coldness [Recovered/Resolved]
  - Rhinorrhoea [Recovered/Resolved]
  - Fatigue [Recovered/Resolved]
  - Local swelling [Recovered/Resolved]
  - Weight increased [Unknown]
